FAERS Safety Report 9876358 (Version 1)
Quarter: 2014Q1

REPORT INFORMATION
  Report Type: Other
  Country: US (occurrence: US)
  Receive Date: 20140206
  Receipt Date: 20140206
  Transmission Date: 20141002
  Serious: No
  Sender: FDA-Public Use
  Company Number: US-ACORDA-ACO_38138_2013

PATIENT
  Sex: Male

DRUGS (4)
  1. AMPYRA [Suspect]
     Indication: PRODUCT USED FOR UNKNOWN INDICATION
     Dosage: 10 MG, BID
     Route: 065
     Dates: start: 20130501, end: 2013
  2. AMPYRA [Suspect]
     Dosage: 10 MG, QD
     Route: 065
     Dates: start: 2013, end: 2013
  3. AMPYRA [Suspect]
     Dosage: 10 MG, BID
     Route: 065
     Dates: start: 2013, end: 2013
  4. ANTIDEPRESSANTS [Concomitant]
     Indication: DEPRESSION
     Dosage: UNK

REACTIONS (2)
  - Multiple sclerosis relapse [Recovered/Resolved]
  - Drug dose omission [Recovered/Resolved]
